FAERS Safety Report 7149651-4 (Version None)
Quarter: 2010Q4

REPORT INFORMATION
  Report Type: 
  Country: None (occurrence: None)
  Receive Date: 20101209
  Receipt Date: 20101207
  Transmission Date: 20110411
  Serious: Yes (Other)
  Sender: FDA-Public Use
  Company Number: GB-MERCK-1012GBR00035

PATIENT
  Age: 64 Year
  Sex: Female
  Weight: 85 kg

DRUGS (10)
  1. ZOCOR [Suspect]
     Route: 048
     Dates: start: 20101201
  2. ZOCOR [Suspect]
     Route: 048
     Dates: start: 20100817, end: 20100914
  3. ZOCOR [Suspect]
     Route: 048
     Dates: start: 20101020, end: 20101117
  4. BENDROFLUMETHIAZIDE [Concomitant]
     Route: 065
     Dates: start: 20100817, end: 20100914
  5. BENDROFLUMETHIAZIDE [Concomitant]
     Route: 065
     Dates: start: 20101020, end: 20101117
  6. ACETAMINOPHEN AND CODEINE PHOSPHATE [Concomitant]
     Route: 065
     Dates: start: 20100920, end: 20100925
  7. PREDNISOLONE [Concomitant]
     Route: 065
     Dates: start: 20101020, end: 20101027
  8. TRIMETHOPRIM [Concomitant]
     Route: 065
     Dates: start: 20100827, end: 20100903
  9. VALSARTAN [Concomitant]
     Route: 065
     Dates: start: 20100817, end: 20100914
  10. VALSARTAN [Concomitant]
     Route: 065
     Dates: start: 20101020, end: 20101117

REACTIONS (1)
  - PAIN IN EXTREMITY [None]
